FAERS Safety Report 23978013 (Version 1)
Quarter: 2024Q2

REPORT INFORMATION
  Report Type: Spontaneous
  Country: US (occurrence: None)
  Receive Date: 20240613
  Receipt Date: 20240613
  Transmission Date: 20240715
  Serious: Yes (Death)
  Sender: FDA-Public Use
  Company Number: None

PATIENT
  Age: 73 Year
  Sex: Male
  Weight: 93.44 kg

DRUGS (3)
  1. ENFORTUMAB VEDOTIN-EJFV [Suspect]
     Active Substance: ENFORTUMAB VEDOTIN-EJFV
     Indication: Bladder cancer
     Dosage: 120 MG DAYS  1 + 8 Q 21 D  INTRAVENOUS
     Dates: start: 20240510, end: 20240517
  2. KEYTRUDA [Suspect]
     Active Substance: PEMBROLIZUMAB
  3. PADCEV [Concomitant]
     Active Substance: ENFORTUMAB VEDOTIN-EJFV

REACTIONS (4)
  - Abdominal discomfort [None]
  - Lip swelling [None]
  - Dyspnoea [None]
  - Stevens-Johnson syndrome [None]

NARRATIVE: CASE EVENT DATE: 20240601
